FAERS Safety Report 8405885-X (Version None)
Quarter: 2012Q2

REPORT INFORMATION
  Report Type: 
  Country: None (occurrence: None)
  Receive Date: 20120529
  Receipt Date: 20060202
  Transmission Date: 20120825
  Serious: Yes (Hospitalization)
  Sender: FDA-Public Use
  Company Number: 15691-USA-06-0348

PATIENT
  Age: 75 Year
  Sex: Male

DRUGS (8)
  1. DIGOXIN [Concomitant]
  2. ISOSORBIDE MONONITRATE [Concomitant]
  3. CARVEDILOL [Concomitant]
  4. SPIRONOLACTONE [Concomitant]
  5. FUROSEMIDE [Concomitant]
  6. ALDACTONE [Concomitant]
  7. TOLVAPTAN (TOLVAPTAN(V4.1)) 30MG [Suspect]
     Indication: CARDIAC FAILURE CONGESTIVE
     Dosage: 30 MG, QD, ORAL
     Route: 048
     Dates: start: 20040702
  8. CAPTOPRIL [Concomitant]

REACTIONS (2)
  - CONDITION AGGRAVATED [None]
  - CARDIAC FAILURE [None]
